FAERS Safety Report 7917084-6 (Version None)
Quarter: 2011Q4

REPORT INFORMATION
  Report Type: 
  Country: None (occurrence: None)
  Receive Date: 20111114
  Receipt Date: 20111026
  Transmission Date: 20120403
  Serious: Yes (Death, Hospitalization, Other)
  Sender: FDA-Public Use
  Company Number: UTC-009767

PATIENT
  Age: 63 Year
  Sex: Female
  Weight: 95 kg

DRUGS (6)
  1. REMODULIN [Suspect]
     Dosage: 0.005 UG/KG
  2. THIAMINE HCL [Concomitant]
  3. METHOTREXATE [Concomitant]
  4. REMODULIN [Suspect]
     Indication: PULMONARY ARTERIAL HYPERTENSION
     Dosage: 11.52 UG/KG (0.008 UG/KG, 1 IN 1 MIN), SUBCUTANEOUS
     Route: 058
     Dates: start: 20110802
  5. OMEPRAZOLE [Concomitant]
  6. SILDENAFIL CITRATE [Concomitant]

REACTIONS (10)
  - CARDIAC FAILURE [None]
  - HYPOGLYCAEMIA [None]
  - SUBDURAL HAEMORRHAGE [None]
  - SUBARACHNOID HAEMORRHAGE [None]
  - PULMONARY OEDEMA [None]
  - HYPONATRAEMIA [None]
  - COMA [None]
  - HAEMODYNAMIC INSTABILITY [None]
  - OLIGURIA [None]
  - CARDIOGENIC SHOCK [None]
